FAERS Safety Report 10251795 (Version 1)
Quarter: 2014Q2

REPORT INFORMATION
  Report Type: Spontaneous
  Country: FR (occurrence: FR)
  Receive Date: 20140623
  Receipt Date: 20140623
  Transmission Date: 20141212
  Serious: Yes (Other)
  Sender: FDA-Public Use
  Company Number: FR-ROCHE-1422322

PATIENT
  Sex: Male

DRUGS (4)
  1. XELODA [Suspect]
     Indication: PRODUCT USED FOR UNKNOWN INDICATION
     Route: 065
  2. CODOLIPRANE [Concomitant]
  3. TRAMADOL [Concomitant]
  4. OXALIPLATIN [Concomitant]

REACTIONS (4)
  - Fall [Unknown]
  - Malaise [Unknown]
  - Lumbar vertebral fracture [Unknown]
  - Drug effect decreased [Unknown]
